FAERS Safety Report 16198357 (Version 1)
Quarter: 2019Q2

REPORT INFORMATION
  Report Type: Spontaneous
  Country: US (occurrence: US)
  Receive Date: 20190312
  Receipt Date: 20190312
  Transmission Date: 20190711
  Serious: Yes (Hospitalization)
  Sender: FDA-Public Use
  Company Number: None

PATIENT
  Age: 43 Year
  Sex: Male

DRUGS (7)
  1. RANITIDINE. [Concomitant]
     Active Substance: RANITIDINE
  2. FISH OIL [Concomitant]
     Active Substance: FISH OIL
  3. PULMOZYME [Suspect]
     Active Substance: DORNASE ALFA
     Indication: CYSTIC FIBROSIS
     Route: 030
     Dates: start: 20190131
  4. PANCREAZE [Suspect]
     Active Substance: PANCRELIPASE AMYLASE\PANCRELIPASE LIPASE\PANCRELIPASE PROTEASE
  5. VITAMIN C [Concomitant]
     Active Substance: ASCORBIC ACID
  6. LOSARTAN POT [Concomitant]
     Active Substance: LOSARTAN POTASSIUM
  7. CLARITIN [Concomitant]
     Active Substance: LORATADINE

REACTIONS (2)
  - Gastroenteritis [None]
  - Infective pulmonary exacerbation of cystic fibrosis [None]

NARRATIVE: CASE EVENT DATE: 20190228
